FAERS Safety Report 14349661 (Version 2)
Quarter: 2018Q1

REPORT INFORMATION
  Report Type: Report from Study
  Country: US (occurrence: US)
  Receive Date: 20180104
  Receipt Date: 20180112
  Transmission Date: 20180509
  Serious: Yes (Hospitalization)
  Sender: FDA-Public Use
  Company Number: US-BAYER-2017-232002

PATIENT
  Age: 48 Year
  Sex: Male

DRUGS (3)
  1. NEXAVAR [Suspect]
     Active Substance: SORAFENIB
     Indication: HEPATOCELLULAR CARCINOMA
     Dosage: 400 MG, BID
     Route: 048
     Dates: start: 20180103
  2. NEXAVAR [Suspect]
     Active Substance: SORAFENIB
     Indication: HEPATOCELLULAR CARCINOMA
     Dosage: 200 MG, BID
     Route: 048
     Dates: start: 20171127, end: 20171214
  3. NEXAVAR [Suspect]
     Active Substance: SORAFENIB
     Indication: HEPATOCELLULAR CARCINOMA
     Dosage: 200 MG, BID
     Route: 048
     Dates: start: 20171220, end: 20180102

REACTIONS (11)
  - Loss of personal independence in daily activities [None]
  - Therapeutic response unexpected [None]
  - Off label use [None]
  - Post procedural infection [None]
  - Decreased appetite [None]
  - Tremor [None]
  - Fatigue [None]
  - Seizure [None]
  - Dry skin [None]
  - Product use issue [None]
  - Tremor [Recovered/Resolved]

NARRATIVE: CASE EVENT DATE: 201711
